FAERS Safety Report 12468815 (Version 1)
Quarter: 2016Q2

REPORT INFORMATION
  Report Type: Spontaneous
  Country: TR (occurrence: TR)
  Receive Date: 20160615
  Receipt Date: 20160615
  Transmission Date: 20160815
  Serious: Yes (Congenital Anomaly, Other)
  Sender: FDA-Public Use
  Company Number: TR-WATSON-2015-20223

PATIENT
  Age: 38 Week
  Sex: Male

DRUGS (2)
  1. ISONIAZID. [Concomitant]
     Active Substance: ISONIAZID
     Indication: PULMONARY TUBERCULOSIS
     Dosage: UNK
     Route: 064
  2. RIFAMPICIN (UNKNOWN) [Suspect]
     Active Substance: RIFAMPIN
     Indication: PULMONARY TUBERCULOSIS
     Dosage: UNK
     Route: 064

REACTIONS (3)
  - Nephrolithiasis [Unknown]
  - Limb hypoplasia congenital [Not Recovered/Not Resolved]
  - Foetal exposure during pregnancy [Unknown]
